FAERS Safety Report 19173220 (Version 1)
Quarter: 2021Q2

REPORT INFORMATION
  Report Type: Spontaneous
  Country: US (occurrence: US)
  Receive Date: 20210421
  Receipt Date: 20210421
  Transmission Date: 20210717
  Serious: No
  Sender: FDA-Public Use
  Company Number: None

PATIENT
  Age: 72 Year
  Sex: Male
  Weight: 99.79 kg

DRUGS (1)
  1. NOT POT ORIGINAL CBD GUMMIES [Suspect]
     Active Substance: CANNABIDIOL\HERBALS
     Indication: ANALGESIC THERAPY
     Route: 048

REACTIONS (6)
  - Illness [None]
  - Vomiting [None]
  - Diarrhoea [None]
  - Food poisoning [None]
  - Product contamination [None]
  - Product quality issue [None]

NARRATIVE: CASE EVENT DATE: 20210305
